FAERS Safety Report 23274959 (Version 2)
Quarter: 2023Q4

REPORT INFORMATION
  Report Type: Spontaneous
  Country: US (occurrence: US)
  Receive Date: 20231208
  Receipt Date: 20231214
  Transmission Date: 20240109
  Serious: No
  Sender: FDA-Public Use
  Company Number: US-JNJFOC-20231213584

PATIENT
  Sex: Male

DRUGS (1)
  1. SIMPONI [Suspect]
     Active Substance: GOLIMUMAB
     Indication: Product used for unknown indication
     Route: 058

REACTIONS (4)
  - Pain [Not Recovered/Not Resolved]
  - Mobility decreased [Not Recovered/Not Resolved]
  - Product dose omission issue [Unknown]
  - Stomatitis [Unknown]
